FAERS Safety Report 11496472 (Version 3)
Quarter: 2015Q4

REPORT INFORMATION
  Report Type: Spontaneous
  Country: CO (occurrence: CO)
  Receive Date: 20150911
  Receipt Date: 20151026
  Transmission Date: 20160304
  Serious: Yes (Other)
  Sender: FDA-Public Use
  Company Number: ALCN2015CO005581

PATIENT
  Age: 48 Year
  Sex: Male

DRUGS (9)
  1. SYSTANE (HYPROMELLOSE 2910 (4000 MPA.S)) [Suspect]
     Active Substance: HYPROMELLOSE 2910 (4000 MPA.S)
     Indication: ULCERATIVE KERATITIS
     Dosage: 1 GTT, Q4H
     Route: 047
     Dates: start: 201508, end: 20150831
  2. PILOCARPINE. [Concomitant]
     Active Substance: PILOCARPINE
     Indication: PRODUCT USED FOR UNKNOWN INDICATION
     Dosage: 5 MG, QID
     Route: 048
  3. MOXIFLOXACIN. [Concomitant]
     Active Substance: MOXIFLOXACIN
     Indication: CONJUNCTIVAL HYPERAEMIA
     Dosage: 1 GTT, Q6H
     Route: 047
     Dates: start: 20150831
  4. THYROXINE [Concomitant]
     Active Substance: LEVOTHYROXINE
     Indication: PRODUCT USED FOR UNKNOWN INDICATION
     Dosage: 0.075 MG, QD
     Route: 048
  5. POLYACRYLIC ACID [Concomitant]
     Indication: ULCERATIVE KERATITIS
     Dosage: 1 GTT, UNK
     Route: 047
  6. CHLOROQUINE. [Concomitant]
     Active Substance: CHLOROQUINE
     Indication: PRODUCT USED FOR UNKNOWN INDICATION
     Dosage: 250 MG, QD
     Route: 048
  7. TRAZODONE [Concomitant]
     Active Substance: TRAZODONE HYDROCHLORIDE
     Indication: PRODUCT USED FOR UNKNOWN INDICATION
     Dosage: 100 MG, QD
     Route: 048
  8. MOXIFLOXACIN. [Concomitant]
     Active Substance: MOXIFLOXACIN
     Indication: ULCERATIVE KERATITIS
     Dosage: 1 GTT, Q4H
     Route: 047
     Dates: end: 20150831
  9. POLYACRYLIC ACID [Concomitant]
     Indication: CONJUNCTIVAL HYPERAEMIA

REACTIONS (3)
  - Conjunctivitis [Recovering/Resolving]
  - Ulcerative keratitis [Recovering/Resolving]
  - Blepharospasm [Recovering/Resolving]

NARRATIVE: CASE EVENT DATE: 20150831
